FAERS Safety Report 15578301 (Version 1)
Quarter: 2018Q4

REPORT INFORMATION
  Report Type: Other
  Country: ES (occurrence: ES)
  Receive Date: 20181102
  Receipt Date: 20181102
  Transmission Date: 20190205
  Serious: Yes (Hospitalization, Other)
  Sender: FDA-Public Use
  Company Number: ES-APOTEX-2018AP023701

PATIENT
  Age: 14 Year
  Sex: Female

DRUGS (14)
  1. ARIPIPRAZOLE. [Concomitant]
     Active Substance: ARIPIPRAZOLE
     Indication: PSYCHOTIC DISORDER
     Dosage: UNKNOWN DOSE
     Route: 065
  2. VENLAFAXINE [Concomitant]
     Active Substance: VENLAFAXINE HYDROCHLORIDE
     Indication: PRODUCT USED FOR UNKNOWN INDICATION
     Dosage: UNK
     Route: 065
  3. HALOPERIDOL. [Suspect]
     Active Substance: HALOPERIDOL
     Indication: HALLUCINATION
     Dosage: BETWEEN 1 MG/DAY AND 3 MG/DAY
     Route: 065
  4. MODIODAL [Suspect]
     Active Substance: MODAFINIL
     Indication: PRODUCT USED FOR UNKNOWN INDICATION
     Route: 065
  5. XYREM [Suspect]
     Active Substance: SODIUM OXYBATE
     Indication: CATAPLEXY
     Dosage: LOW DOSE
     Route: 065
  6. ASCORBIC ACID/BETAINE HYDROCHLORIDE/COPPER/CYANOCOBALAMIN/FOLIC ACI... [Concomitant]
     Indication: SERUM FERRITIN DECREASED
     Dosage: UNKNOWN DOSE
     Route: 048
  7. RISPERIDONE. [Suspect]
     Active Substance: RISPERIDONE
     Indication: HALLUCINATION
     Dosage: 5 MG, DAILY
     Route: 065
  8. HALOPERIDOL. [Concomitant]
     Active Substance: HALOPERIDOL
     Indication: DELUSION
  9. BIPERIDEN [Concomitant]
     Active Substance: BIPERIDEN
     Indication: DYSTONIA
     Dosage: 4 MG, UNK
     Route: 065
  10. XYREM [Suspect]
     Active Substance: SODIUM OXYBATE
     Indication: NARCOLEPSY
     Dosage: 4 G, DAILY, LOW DOSE
     Route: 065
     Dates: start: 201406, end: 2014
  11. METHYLPHENIDATE HYDROCHLORIDE. [Concomitant]
     Active Substance: METHYLPHENIDATE HYDROCHLORIDE
     Dosage: UNK
     Route: 065
  12. MODIODAL [Concomitant]
     Active Substance: MODAFINIL
     Indication: NARCOLEPSY
     Dosage: 100 MG, PER DAY
     Route: 065
  13. METHYLPHENIDATE HYDROCHLORIDE. [Concomitant]
     Active Substance: METHYLPHENIDATE HYDROCHLORIDE
     Indication: ATTENTION DEFICIT/HYPERACTIVITY DISORDER
     Dosage: UNK
     Route: 065
  14. HALOPERIDOL. [Concomitant]
     Active Substance: HALOPERIDOL
     Indication: DYSPHORIA
     Dosage: 1 MG, DAILY
     Route: 065

REACTIONS (13)
  - Delusion [Unknown]
  - Suicidal ideation [Recovered/Resolved]
  - Dystonia [Unknown]
  - Dysphoria [Recovered/Resolved]
  - Galactorrhoea [Unknown]
  - Weight increased [Unknown]
  - Polycystic ovaries [Unknown]
  - Hyperprolactinaemia [Unknown]
  - Abnormal behaviour [Recovered/Resolved]
  - Cataplexy [Unknown]
  - Somnolence [Unknown]
  - Irritability [Recovered/Resolved]
  - Hallucination, auditory [Recovered/Resolved]

NARRATIVE: CASE EVENT DATE: 201305
